FAERS Safety Report 8916710 (Version 1)
Quarter: 2012Q4

REPORT INFORMATION
  Report Type: 
  Country: JP (occurrence: JP)
  Receive Date: 20121120
  Receipt Date: 20121120
  Transmission Date: 20130627
  Serious: Yes (Hospitalization)
  Sender: FDA-Public Use
  Company Number: JP-ROCHE-237303

PATIENT
  Age: 71 Year
  Sex: Male
  Weight: 67.4 kg

DRUGS (1)
  1. ROCEPHIN [Suspect]
     Indication: PROPHYLAXIS
     Route: 041
     Dates: start: 20000508, end: 20000512

REACTIONS (1)
  - Liver injury [Recovered/Resolved]
